FAERS Safety Report 8984803 (Version 1)
Quarter: 2012Q4

REPORT INFORMATION
  Report Type: 
  Country: US (occurrence: US)
  Receive Date: 20121226
  Receipt Date: 20121226
  Transmission Date: 20130627
  Serious: No
  Sender: FDA-Public Use
  Company Number: US-PFIZER INC-2012323243

PATIENT
  Sex: Female

DRUGS (4)
  1. LYRICA [Suspect]
     Indication: DIABETIC
     Dosage: 50 mg, 1x/day (at night once a day)
  2. LYRICA [Suspect]
     Indication: PAIN
  3. LYRICA [Suspect]
     Indication: FIBROMYALGIA
  4. LYRICA [Suspect]
     Indication: PAIN IN FOOT

REACTIONS (2)
  - Inappropriate schedule of drug administration [Unknown]
  - Pain [Unknown]
